FAERS Safety Report 25064925 (Version 1)
Quarter: 2025Q1

REPORT INFORMATION
  Report Type: Report from Study
  Country: US (occurrence: US)
  Receive Date: 20250311
  Receipt Date: 20250311
  Transmission Date: 20250408
  Serious: Yes (Life-Threatening, Hospitalization, Other)
  Sender: TAKEDA
  Company Number: US-TAKEDA-2025TUS025041

PATIENT
  Sex: Male

DRUGS (1)
  1. VEDOLIZUMAB [Suspect]
     Active Substance: VEDOLIZUMAB
     Indication: Product used for unknown indication

REACTIONS (11)
  - Haemoglobin decreased [Unknown]
  - Infection [Unknown]
  - Diarrhoea [Unknown]
  - Weight decreased [Unknown]
  - Dyspepsia [Unknown]
  - Dehydration [Unknown]
  - Fall [Unknown]
  - Asthenia [Unknown]
  - Dyspnoea [Unknown]
  - Heart rate increased [Unknown]
  - Influenza [Unknown]
